FAERS Safety Report 12130621 (Version 1)
Quarter: 2016Q1

REPORT INFORMATION
  Report Type: Spontaneous
  Country: US (occurrence: None)
  Receive Date: 20160229
  Receipt Date: 20160229
  Transmission Date: 20160526
  Serious: No
  Sender: FDA-Public Use
  Company Number: None

PATIENT
  Age: 54 Year
  Sex: Female

DRUGS (1)
  1. PROLIA [Suspect]
     Active Substance: DENOSUMAB
     Indication: OSTEOPOROSIS
     Dosage: 60 MG, EVERY 6 MONTHS, SUBCUTANEOUS
     Route: 058
     Dates: start: 20130730

REACTIONS (2)
  - Urticaria [None]
  - Psoriasis [None]

NARRATIVE: CASE EVENT DATE: 20160218
